FAERS Safety Report 14983088 (Version 1)
Quarter: 2018Q2

REPORT INFORMATION
  Report Type: Spontaneous
  Country: US (occurrence: US)
  Receive Date: 20180515
  Receipt Date: 20180515
  Transmission Date: 20180711
  Serious: Yes (Death)
  Sender: FDA-Public Use
  Company Number: None

PATIENT
  Age: 33 Month
  Sex: Male

DRUGS (1)
  1. MYCOPHENOLATE SUS [Suspect]
     Active Substance: MYCOPHENOLATE MOFETIL
     Indication: NEPHROTIC SYNDROME
     Route: 048
     Dates: start: 20180319

REACTIONS (2)
  - Oral pain [None]
  - Gingival bleeding [None]

NARRATIVE: CASE EVENT DATE: 20180515
